FAERS Safety Report 9552371 (Version 1)
Quarter: 2013Q3

REPORT INFORMATION
  Report Type: Spontaneous
  Country: US (occurrence: US)
  Receive Date: 20130925
  Receipt Date: 20130925
  Transmission Date: 20140515
  Serious: Yes (Other)
  Sender: FDA-Public Use
  Company Number: US-ASTELLAS-2013US009913

PATIENT
  Age: 82 Year
  Sex: Male

DRUGS (2)
  1. MYRBETRIQ [Suspect]
     Indication: PROSTATIC DISORDER
     Dosage: 25 MG, UID/QD
     Route: 048
     Dates: start: 20130913, end: 20130916
  2. ANTIHYPERTENSIVES [Concomitant]
     Indication: PRODUCT USED FOR UNKNOWN INDICATION
     Dosage: UNK
     Route: 065

REACTIONS (4)
  - Hypotension [Unknown]
  - Urinary retention [Recovered/Resolved]
  - Vision blurred [Unknown]
  - Diarrhoea [Unknown]
